FAERS Safety Report 9051944 (Version 1)
Quarter: 2013Q1

REPORT INFORMATION
  Report Type: Spontaneous
  Country: US (occurrence: None)
  Receive Date: 20130130
  Receipt Date: 20130130
  Transmission Date: 20140127
  Serious: No
  Sender: FDA-Public Use
  Company Number: None

PATIENT
  Sex: Male
  Weight: 73 kg

DRUGS (4)
  1. BLEOMYCIN [Suspect]
  2. DACARBAZINE [Suspect]
  3. DOXORUBICIN HYDROCHLORIDE [Suspect]
  4. VINBLASTINE SULFATE [Suspect]

REACTIONS (1)
  - Neutrophil count abnormal [None]
